FAERS Safety Report 8454023-6 (Version None)
Quarter: 2012Q2

REPORT INFORMATION
  Report Type: 
  Country: None (occurrence: None)
  Receive Date: 20120620
  Receipt Date: 20120615
  Transmission Date: 20120825
  Serious: Yes (Life-Threatening, Hospitalization, Other)
  Sender: FDA-Public Use
  Company Number: GB-BAYER-2012-059506

PATIENT
  Age: 69 Year
  Sex: Female
  Weight: 74 kg

DRUGS (9)
  1. ASPIRIN [Suspect]
     Dosage: UNK
  2. VAGIFEM [Concomitant]
     Indication: VULVOVAGINAL DRYNESS
     Dosage: 25 ?G, OW
     Route: 067
     Dates: start: 20110128
  3. BISOPROLOL FUMARATE [Concomitant]
     Indication: HYPERTENSION
     Dosage: DAILY DOSE 5 MG
     Route: 048
     Dates: start: 20031201
  4. AMOXICILLIN [Concomitant]
     Indication: COUGH
     Dosage: DAILY DOSE 1500 MG
     Route: 048
     Dates: start: 20120314, end: 20120321
  5. QUININE SULFATE [Concomitant]
     Indication: MUSCLE SPASMS
     Dosage: DAILY DOSE 300 MG
     Route: 048
     Dates: start: 20090401
  6. DIAZEPAM [Concomitant]
     Indication: ANXIETY
     Dosage: DAILY DOSE 5 MG
     Route: 048
     Dates: start: 19690101
  7. IBUPROFEN [Concomitant]
     Indication: MYALGIA
     Dosage: UNK UNK, PRN
     Route: 061
     Dates: start: 20120201, end: 20120207
  8. ESTROGEL [Concomitant]
     Indication: VULVOVAGINAL DRYNESS
     Dosage: 0.06 %, UNK
     Route: 061
     Dates: start: 20111125
  9. FLUCLOXACILLIN [Concomitant]
     Indication: BREAST ABSCESS
     Dosage: DAILY DOSE 2000 MG
     Route: 048
     Dates: start: 20120117, end: 20120118

REACTIONS (1)
  - ISCHAEMIC STROKE [None]
